FAERS Safety Report 23580695 (Version 1)
Quarter: 2024Q1

REPORT INFORMATION
  Report Type: Spontaneous
  Country: PL (occurrence: PL)
  Receive Date: 20240229
  Receipt Date: 20240229
  Transmission Date: 20240409
  Serious: Yes (Death)
  Sender: FDA-Public Use
  Company Number: None

PATIENT
  Age: 76 Year
  Sex: Male

DRUGS (5)
  1. METHOTREXATE [Suspect]
     Active Substance: METHOTREXATE
     Indication: Rheumatoid arthritis
     Dosage: DOSAGE: X 1; START DATE: UNKNOWN
     Route: 048
     Dates: end: 20231217
  2. ELIQUIS [Suspect]
     Active Substance: APIXABAN
     Indication: Ischaemic stroke
     Dosage: DOSAGE: X2; START DATE: 05.12 (?)
     Route: 048
     Dates: end: 20231217
  3. METHIMAZOLE [Suspect]
     Active Substance: METHIMAZOLE
     Indication: Product used for unknown indication
     Dosage: DOSAGE: X 1; START DATE: UNKNOWN
     Route: 048
     Dates: end: 20231217
  4. LOSARTAN POTASSIUM [Suspect]
     Active Substance: LOSARTAN POTASSIUM
     Indication: Endarterectomy
     Dosage: DOSAGE: X 1
     Route: 048
     Dates: start: 202311, end: 20231217
  5. PLAVIX [Suspect]
     Active Substance: CLOPIDOGREL BISULFATE
     Indication: Endarterectomy
     Dosage: DOSAGE: X 1
     Route: 048
     Dates: start: 202311, end: 20231217

REACTIONS (4)
  - Urethral haemorrhage [Fatal]
  - Mouth haemorrhage [Fatal]
  - Haemorrhagic diathesis [Fatal]
  - Pancytopenia [Fatal]

NARRATIVE: CASE EVENT DATE: 20231211
